FAERS Safety Report 18368253 (Version 5)
Quarter: 2020Q4

REPORT INFORMATION
  Report Type: Report from Study
  Country: US (occurrence: US)
  Receive Date: 20201009
  Receipt Date: 20201223
  Transmission Date: 20210114
  Serious: Yes (Other)
  Sender: FDA-Public Use
  Company Number: US-BRISTOL-MYERS SQUIBB COMPANY-BMS-2020-032632

PATIENT
  Age: 55 Year
  Sex: Female

DRUGS (5)
  1. ADVIL [IBUPROFEN] [Concomitant]
     Active Substance: IBUPROFEN
     Indication: PRODUCT USED FOR UNKNOWN INDICATION
     Route: 065
  2. GABAPENTIN. [Suspect]
     Active Substance: GABAPENTIN
     Indication: NERVE INJURY
     Dosage: 100 MILLIGRAM, TID
     Route: 065
  3. NIVOLUMAB [Suspect]
     Active Substance: NIVOLUMAB
     Indication: MALIGNANT MELANOMA
     Dosage: Q4WK
     Route: 042
     Dates: start: 201403
  4. IPILIMUMAB [Suspect]
     Active Substance: IPILIMUMAB
     Indication: MALIGNANT MELANOMA
     Dosage: UNK
     Route: 065
     Dates: start: 201403
  5. ESTROGEN [Concomitant]
     Active Substance: ESTROGENS
     Indication: PRODUCT USED FOR UNKNOWN INDICATION
     Route: 065

REACTIONS (35)
  - Back pain [Unknown]
  - Fatigue [Unknown]
  - Pruritus [Unknown]
  - Sciatica [Unknown]
  - Hyperthyroidism [Unknown]
  - Chordoma [Unknown]
  - Rash [Recovering/Resolving]
  - Vulvovaginal dryness [Unknown]
  - Hypertonic bladder [Unknown]
  - Hyperventilation [Unknown]
  - Pelvic pain [Recovered/Resolved]
  - Hepatic enzyme increased [Recovering/Resolving]
  - Decreased appetite [Unknown]
  - Feeling abnormal [Unknown]
  - Hot flush [Unknown]
  - Limb discomfort [Unknown]
  - Diarrhoea [Unknown]
  - Lymphadenopathy [Unknown]
  - Vulvovaginal burning sensation [Unknown]
  - Arthropathy [Unknown]
  - Bone pain [Unknown]
  - Meniscus injury [Unknown]
  - Headache [Unknown]
  - Urinary tract infection [Unknown]
  - Haemochromatosis [Unknown]
  - Stress fracture [Unknown]
  - Pain [Unknown]
  - Purpura [Unknown]
  - Depression [Unknown]
  - Insomnia [Unknown]
  - Asthenia [Unknown]
  - Arthralgia [Unknown]
  - White blood cell count increased [Recovered/Resolved]
  - Fungal infection [Unknown]
  - Nerve injury [Unknown]

NARRATIVE: CASE EVENT DATE: 20200903
